FAERS Safety Report 12139143 (Version 1)
Quarter: 2016Q1

REPORT INFORMATION
  Report Type: Spontaneous
  Country: RO (occurrence: RO)
  Receive Date: 20160302
  Receipt Date: 20160302
  Transmission Date: 20160526
  Serious: Yes (Hospitalization, Other)
  Sender: FDA-Public Use
  Company Number: RO-AMGEN-ROUSP2016023989

PATIENT
  Age: 66 Year
  Sex: Female
  Weight: 64 kg

DRUGS (8)
  1. FASLODEX [Concomitant]
     Active Substance: FULVESTRANT
     Dosage: 14 DAYS
     Route: 058
     Dates: start: 20151027
  2. CODEINE [Concomitant]
     Active Substance: CODEINE
     Dosage: 15 MG, 3XDAY
     Route: 048
     Dates: start: 20151027
  3. RANITIDINE [Concomitant]
     Active Substance: RANITIDINE\RANITIDINE HYDROCHLORIDE
     Dosage: 150 MG, QD
     Route: 048
     Dates: start: 20151027
  4. XGEVA [Suspect]
     Active Substance: DENOSUMAB
     Indication: METASTASES TO BONE
     Dosage: 120 MG, UNK
     Route: 058
     Dates: start: 20150930, end: 20150930
  5. TAMOXIFEN [Concomitant]
     Active Substance: TAMOXIFEN
     Dosage: 10 MUG , 2 X DAY
     Route: 048
     Dates: start: 20150930, end: 20151027
  6. FENTANYL. [Concomitant]
     Active Substance: FENTANYL
     Dosage: 25 MG, 1X 72 HR
     Route: 058
     Dates: start: 20151204
  7. MEDROL [Concomitant]
     Active Substance: METHYLPREDNISOLONE
     Dosage: 8 MG, QD
     Route: 048
     Dates: start: 20151027
  8. SEVREDOL [Concomitant]
     Active Substance: MORPHINE
     Dosage: 1 TAB, Q6H
     Route: 048
     Dates: start: 20151204

REACTIONS (9)
  - Paraparesis [Unknown]
  - Cerebral ventricle dilatation [Unknown]
  - Cerebral arteriosclerosis [Unknown]
  - Hypotonia [Unknown]
  - Myalgia [Unknown]
  - Leukoencephalopathy [Unknown]
  - Cerebral atrophy [Unknown]
  - Neoplasm [Unknown]
  - Bone pain [Unknown]

NARRATIVE: CASE EVENT DATE: 20150930
